FAERS Safety Report 7362034-7 (Version None)
Quarter: 2011Q1

REPORT INFORMATION
  Report Type: 
  Country: None (occurrence: None)
  Receive Date: 20110318
  Receipt Date: 20110221
  Transmission Date: 20110831
  Serious: No
  Sender: FDA-Public Use
  Company Number: US-B.I. PHARMACEUTICALS,INC./RIDGEFIELD-2010-BP-15333BP

PATIENT
  Sex: Female

DRUGS (16)
  1. B-COMPLEX W/FOLIC ACID [Concomitant]
     Indication: PROPHYLAXIS
     Route: 048
  2. BIOTIN [Concomitant]
     Indication: PROPHYLAXIS
  3. BUFFERED C [Concomitant]
     Indication: PROPHYLAXIS
  4. CENTRUM SILVER [Concomitant]
     Route: 048
  5. VITAMIN D [Concomitant]
     Indication: PROPHYLAXIS
  6. DIOVAN [Concomitant]
     Indication: HYPERTENSION
     Dosage: 160 MG
     Route: 048
  7. FISH OIL [Concomitant]
     Indication: PROPHYLAXIS
     Route: 048
  8. CHROMIUM PIC. [Concomitant]
     Indication: PROPHYLAXIS
     Route: 048
  9. VERAPAMIL [Concomitant]
     Route: 048
  10. VITAMIN C COMPLEX [Concomitant]
     Route: 048
  11. PRADAXA [Suspect]
     Indication: ATRIAL FIBRILLATION
     Dosage: 300 MG
     Route: 048
     Dates: start: 20101206
  12. PRAVASTATIN [Concomitant]
     Indication: BLOOD CHOLESTEROL INCREASED
     Dosage: 40 MG
     Route: 048
  13. OSCAL+D [Concomitant]
     Indication: PROPHYLAXIS
     Route: 048
  14. VERAPAMIL [Concomitant]
     Indication: ATRIAL FIBRILLATION
     Dosage: 180 MG
     Route: 048
  15. MULTI-VITAMIN [Concomitant]
     Indication: PROPHYLAXIS
  16. RECTONATE [Concomitant]
     Indication: PROPHYLAXIS

REACTIONS (10)
  - DIARRHOEA [None]
  - ERYTHEMA [None]
  - HEADACHE [None]
  - ARTHRALGIA [None]
  - RECTAL HAEMORRHAGE [None]
  - GINGIVAL BLEEDING [None]
  - FLATULENCE [None]
  - FATIGUE [None]
  - ABDOMINAL DISCOMFORT [None]
  - ASTHENIA [None]
